FAERS Safety Report 10379916 (Version 3)
Quarter: 2014Q4

REPORT INFORMATION
  Report Type: Report from Study
  Country: FR (occurrence: FR)
  Receive Date: 20140813
  Receipt Date: 20141003
  Transmission Date: 20150528
  Serious: Yes (Other)
  Sender: FDA-Public Use
  Company Number: FR-AMGEN-FRACT2014061072

PATIENT
  Age: 78 Year
  Sex: Male
  Weight: 45 kg

DRUGS (6)
  1. 5 FU [Concomitant]
     Active Substance: FLUOROURACIL
     Dosage: 3750 MG, UNK
     Route: 042
     Dates: start: 20120716, end: 20120919
  2. PANITUMUMAB [Suspect]
     Active Substance: PANITUMUMAB
     Indication: OESOPHAGEAL ADENOCARCINOMA
     Dosage: 300 MG, UNK
     Route: 042
     Dates: start: 20120716, end: 20120917
  3. OXALIPLATIN. [Concomitant]
     Active Substance: OXALIPLATIN
     Indication: OESOPHAGEAL ADENOCARCINOMA
     Dosage: 100 MG, UNK
     Route: 042
     Dates: start: 20120716, end: 20120917
  4. ZOPHREN                            /00955301/ [Concomitant]
     Active Substance: ONDANSETRON
     Dosage: 8 MG, UNK
     Dates: start: 20120917, end: 20120917
  5. CALCIUM FOLINATE [Concomitant]
     Active Substance: LEUCOVORIN CALCIUM
     Indication: OESOPHAGEAL ADENOCARCINOMA
     Dosage: 310 MG, UNK
     Route: 042
     Dates: start: 20120716, end: 20120917
  6. 5 FU [Concomitant]
     Active Substance: FLUOROURACIL
     Indication: OESOPHAGEAL ADENOCARCINOMA
     Dosage: 630 MG, UNK
     Route: 040
     Dates: start: 20120716, end: 20120917

REACTIONS (1)
  - Asthenia [Not Recovered/Not Resolved]

NARRATIVE: CASE EVENT DATE: 20120917
